FAERS Safety Report 9205191 (Version 1)
Quarter: 2013Q2

REPORT INFORMATION
  Report Type: Spontaneous
  Country: IT (occurrence: IT)
  Receive Date: 20130402
  Receipt Date: 20130402
  Transmission Date: 20140414
  Serious: Yes (Hospitalization)
  Sender: FDA-Public Use
  Company Number: PHHY2013IT031377

PATIENT
  Age: 75 Year
  Sex: Male

DRUGS (2)
  1. TICLOPIDINE [Suspect]
     Indication: MYOCARDIAL ISCHAEMIA
     Dosage: 250 MG, UNK
     Route: 048
     Dates: start: 20000101, end: 20121226
  2. CONVERTEN [Concomitant]

REACTIONS (4)
  - Presyncope [Recovered/Resolved]
  - Abdominal discomfort [Recovered/Resolved]
  - Hyperhidrosis [Recovered/Resolved]
  - Diarrhoea [Recovered/Resolved]
